FAERS Safety Report 14032098 (Version 4)
Quarter: 2018Q4

REPORT INFORMATION
  Report Type: Spontaneous
  Country: US (occurrence: US)
  Receive Date: 20171002
  Receipt Date: 20181120
  Transmission Date: 20190204
  Serious: Yes (Other)
  Sender: FDA-Public Use
  Company Number: US-PFIZER INC-2017416943

PATIENT
  Age: 65 Year
  Sex: Female
  Weight: 84 kg

DRUGS (5)
  1. SYNTHROID [Concomitant]
     Active Substance: LEVOTHYROXINE SODIUM
     Indication: THYROID HORMONES DECREASED
     Dosage: 75 UG, UNK
     Route: 048
  2. BABY ASPIRIN [Concomitant]
     Active Substance: ASPIRIN
     Dosage: UNK, 3X/DAY
     Route: 048
     Dates: start: 201701
  3. EXEMESTANE. [Suspect]
     Active Substance: EXEMESTANE
     Indication: BREAST CANCER STAGE III
     Dosage: 25 MG, 1X/DAY
     Route: 048
     Dates: start: 20170301, end: 2017
  4. LISINOPRIL. [Concomitant]
     Active Substance: LISINOPRIL
     Indication: HYPERTENSION
     Dosage: 10 MG, 1X/DAY
     Route: 048
  5. ZOLEDRONATE [Concomitant]
     Active Substance: ZOLEDRONIC ACID
     Indication: BONE LOSS
     Dosage: UNK

REACTIONS (17)
  - Back pain [Recovering/Resolving]
  - Chest pain [Recovering/Resolving]
  - Uveitis [Unknown]
  - Neck pain [Recovering/Resolving]
  - Thyroid disorder [Recovering/Resolving]
  - Asthenia [Recovering/Resolving]
  - Blindness unilateral [Unknown]
  - Arthralgia [Recovering/Resolving]
  - Myalgia [Recovering/Resolving]
  - Flatulence [Recovering/Resolving]
  - Dizziness [Recovering/Resolving]
  - Pain in extremity [Recovering/Resolving]
  - Abdominal discomfort [Recovering/Resolving]
  - Weight increased [Recovering/Resolving]
  - Musculoskeletal pain [Recovering/Resolving]
  - Malaise [Recovering/Resolving]
  - Gait disturbance [Recovering/Resolving]

NARRATIVE: CASE EVENT DATE: 2017
